FAERS Safety Report 7892551-2 (Version None)
Quarter: 2011Q4

REPORT INFORMATION
  Report Type: 
  Country: None (occurrence: None)
  Receive Date: 20111104
  Receipt Date: 20111025
  Transmission Date: 20120403
  Serious: Yes (Other)
  Sender: FDA-Public Use
  Company Number: AR-AMGEN-ARGSP2011050311

PATIENT
  Age: 76 Year
  Sex: Female

DRUGS (4)
  1. ENBREL [Suspect]
     Indication: PSORIATIC ARTHROPATHY
     Dosage: 50 MG, WEEKLY
     Route: 058
     Dates: start: 20080117, end: 20110813
  2. ATENOLOL [Concomitant]
     Dosage: UNK
  3. TAURAL                             /00550801/ [Concomitant]
     Dosage: UNK
  4. VITAMINS                           /00067501/ [Concomitant]
     Dosage: UNK

REACTIONS (1)
  - NEOPLASM [None]
